FAERS Safety Report 6852105-3 (Version None)
Quarter: 2010Q3

REPORT INFORMATION
  Report Type: 
  Country: None (occurrence: None)
  Receive Date: 20100717
  Receipt Date: 20071107
  Transmission Date: 20110219
  Serious: No
  Sender: FDA-Public Use
  Company Number: US-PFIZER INC-2007094157

PATIENT
  Sex: Male
  Weight: 59.09 kg

DRUGS (12)
  1. CHANTIX [Suspect]
     Indication: SMOKING CESSATION THERAPY
     Dates: start: 20071101
  2. KEPPRA [Concomitant]
     Indication: CONVULSION
  3. GABAPENTIN [Concomitant]
     Indication: CONVULSION
  4. ZALEPLON [Concomitant]
     Indication: SLEEP DISORDER
  5. SEROQUEL [Concomitant]
     Indication: CONVULSION
  6. IBUPROFEN [Concomitant]
  7. FINASTERIDE [Concomitant]
  8. ACETYLSALICYLIC ACID [Concomitant]
  9. TOPAMAX [Concomitant]
  10. TIZANIDINE HCL [Concomitant]
  11. ALBUTEROL [Concomitant]
     Indication: ASTHMA
  12. SPIRIVA [Concomitant]
     Indication: ASTHMA

REACTIONS (1)
  - DIARRHOEA [None]
